FAERS Safety Report 7537184-2 (Version None)
Quarter: 2011Q2

REPORT INFORMATION
  Report Type: 
  Country: None (occurrence: None)
  Receive Date: 20110603
  Receipt Date: 20110523
  Transmission Date: 20111010
  Serious: Yes (Hospitalization)
  Sender: FDA-Public Use
  Company Number: 2011P1006819

PATIENT
  Age: 64 Year
  Sex: Female

DRUGS (1)
  1. FENTANYL-75 [Suspect]
     Dosage: 1 PATCH, TDER
     Route: 062
     Dates: start: 20101022, end: 20101024

REACTIONS (1)
  - MALAISE [None]
